FAERS Safety Report 19039264 (Version 5)
Quarter: 2022Q4

REPORT INFORMATION
  Report Type: Report from Study
  Country: DE (occurrence: DE)
  Receive Date: 20210322
  Receipt Date: 20221021
  Transmission Date: 20230112
  Serious: Yes (Hospitalization, Other)
  Sender: FDA-Public Use
  Company Number: DE-SHIRE-DE201924176

PATIENT
  Age: 9 Year
  Sex: Female

DRUGS (69)
  1. TEDUGLUTIDE [Suspect]
     Active Substance: TEDUGLUTIDE
     Indication: Short-bowel syndrome
     Dosage: 0.8 MILLIGRAM, QD
     Route: 042
     Dates: start: 20171001, end: 20200825
  2. TEDUGLUTIDE [Suspect]
     Active Substance: TEDUGLUTIDE
     Indication: Short-bowel syndrome
     Dosage: 0.8 MILLIGRAM, QD
     Route: 042
     Dates: start: 20171001, end: 20200825
  3. TEDUGLUTIDE [Suspect]
     Active Substance: TEDUGLUTIDE
     Indication: Short-bowel syndrome
     Dosage: 0.8 MILLIGRAM, QD
     Route: 042
     Dates: start: 20171001, end: 20200825
  4. TEDUGLUTIDE [Suspect]
     Active Substance: TEDUGLUTIDE
     Indication: Short-bowel syndrome
     Dosage: 0.8 MILLIGRAM, QD
     Route: 042
     Dates: start: 20171001, end: 20200825
  5. TEDUGLUTIDE [Suspect]
     Active Substance: TEDUGLUTIDE
     Dosage: 0.9 MILLIGRAM, 1/WEEK
     Route: 042
     Dates: start: 20200826, end: 20210317
  6. TEDUGLUTIDE [Suspect]
     Active Substance: TEDUGLUTIDE
     Dosage: 0.9 MILLIGRAM, 1/WEEK
     Route: 042
     Dates: start: 20200826, end: 20210317
  7. TEDUGLUTIDE [Suspect]
     Active Substance: TEDUGLUTIDE
     Dosage: 0.9 MILLIGRAM, 1/WEEK
     Route: 042
     Dates: start: 20200826, end: 20210317
  8. TEDUGLUTIDE [Suspect]
     Active Substance: TEDUGLUTIDE
     Dosage: 0.9 MILLIGRAM, 1/WEEK
     Route: 042
     Dates: start: 20200826, end: 20210317
  9. TEDUGLUTIDE [Suspect]
     Active Substance: TEDUGLUTIDE
     Dosage: 0.9 MILLIGRAM, QD
     Route: 042
     Dates: start: 20210318, end: 20210528
  10. TEDUGLUTIDE [Suspect]
     Active Substance: TEDUGLUTIDE
     Dosage: 0.9 MILLIGRAM, QD
     Route: 042
     Dates: start: 20210318, end: 20210528
  11. TEDUGLUTIDE [Suspect]
     Active Substance: TEDUGLUTIDE
     Dosage: 0.9 MILLIGRAM, QD
     Route: 042
     Dates: start: 20210318, end: 20210528
  12. TEDUGLUTIDE [Suspect]
     Active Substance: TEDUGLUTIDE
     Dosage: 0.9 MILLIGRAM, QD
     Route: 042
     Dates: start: 20210318, end: 20210528
  13. FERRLECIT 2 [Concomitant]
     Indication: Iron deficiency anaemia
     Dosage: 10 MILLIGRAM, BID
     Route: 042
     Dates: start: 20190323, end: 20190801
  14. FERRLECIT 2 [Concomitant]
     Dosage: 10 MILLIGRAM, 1/WEEK
     Route: 042
     Dates: start: 20190802, end: 20200521
  15. FERRLECIT 2 [Concomitant]
     Dosage: 10 MILLIGRAM, 1/WEEK
     Route: 042
     Dates: start: 20200825, end: 20210303
  16. FERRLECIT 2 [Concomitant]
     Dosage: UNK UNK, 1/WEEK
     Route: 042
     Dates: start: 20210304
  17. FERRLECIT 2 [Concomitant]
     Dosage: 37.5 UNK, 1/WEEK
     Route: 042
     Dates: start: 20210723
  18. FUROSEMIDE [Concomitant]
     Active Substance: FUROSEMIDE
     Indication: Disease complication
     Dosage: 280 MILLIGRAM
     Route: 042
     Dates: start: 20190323, end: 20190401
  19. FUROSEMIDE [Concomitant]
     Active Substance: FUROSEMIDE
     Indication: Dehydration
     Dosage: 15 MILLIGRAM, QID
     Route: 048
     Dates: start: 20191123, end: 20191208
  20. FUROSEMIDE [Concomitant]
     Active Substance: FUROSEMIDE
     Dosage: 20 MILLIGRAM, QID
     Route: 048
     Dates: start: 20191209, end: 20200118
  21. FUROSEMIDE [Concomitant]
     Active Substance: FUROSEMIDE
     Dosage: 280 MILLIGRAM
     Route: 050
     Dates: start: 20200119, end: 20201030
  22. FUROSEMIDE [Concomitant]
     Active Substance: FUROSEMIDE
     Dosage: 300 MILLIGRAM
     Route: 050
     Dates: start: 20201031, end: 20210303
  23. FUROSEMIDE [Concomitant]
     Active Substance: FUROSEMIDE
     Dosage: 10 MILLIGRAM, BID
     Route: 048
     Dates: start: 20201024, end: 20210303
  24. FUROSEMIDE [Concomitant]
     Active Substance: FUROSEMIDE
     Dosage: 15 MILLIGRAM, TID
     Route: 048
     Dates: start: 20210304
  25. FUROSEMIDE [Concomitant]
     Active Substance: FUROSEMIDE
     Dosage: 68.6 MILLIGRAM, QD
     Route: 042
     Dates: start: 20211215
  26. HEPARIN [Concomitant]
     Active Substance: HEPARIN SODIUM
     Indication: Anticoagulant therapy
     Dosage: 35000 INTERNATIONAL UNIT
     Route: 042
     Dates: start: 20190323, end: 20200118
  27. HEPARIN [Concomitant]
     Active Substance: HEPARIN SODIUM
     Dosage: 30000 INTERNATIONAL UNIT
     Route: 042
     Dates: start: 20200119, end: 20201030
  28. HEPARIN [Concomitant]
     Active Substance: HEPARIN SODIUM
     Dosage: 35000 INTERNATIONAL UNIT
     Route: 042
     Dates: start: 20201031, end: 20210303
  29. ERYTHROPOETIN [EPOETIN ALFA] [Concomitant]
     Indication: Anaemia
     Dosage: 300 INTERNATIONAL UNIT, 1/WEEK
     Route: 042
     Dates: start: 20190323, end: 20210304
  30. NEFROCARNIT [Concomitant]
     Indication: Product used for unknown indication
     Dosage: UNK
     Route: 065
  31. CALCITRIOL [Concomitant]
     Active Substance: CALCITRIOL
     Indication: Vitamin D
     Dosage: 1 INTERNATIONAL UNIT
     Route: 042
     Dates: start: 20190323, end: 20190801
  32. CALCITRIOL [Concomitant]
     Active Substance: CALCITRIOL
     Indication: Renal disorder
     Dosage: 1 INTERNATIONAL UNIT, 1/WEEK
     Route: 042
     Dates: start: 20190802
  33. CALCITRIOL [Concomitant]
     Active Substance: CALCITRIOL
     Dosage: 1 INTERNATIONAL UNIT, 1/WEEK
     Route: 042
     Dates: start: 20210723
  34. ERYTHROPOIETIN [Concomitant]
     Active Substance: ERYTHROPOIETIN
     Indication: Product used for unknown indication
     Dosage: UNK
     Route: 065
  35. VITADRAL [Concomitant]
     Indication: Vitamin A deficiency
     Dosage: 4 GTT DROPS, QD
     Route: 048
     Dates: start: 20150522, end: 20191005
  36. VITADRAL [Concomitant]
     Dosage: 6 GTT DROPS, QD
     Route: 048
     Dates: start: 20191209, end: 20200727
  37. VITADRAL [Concomitant]
     Dosage: 15 GTT DROPS, QD
     Route: 047
     Dates: start: 20200728
  38. AMPHO-MORONAL [Concomitant]
     Active Substance: AMPHOTERICIN B
     Indication: Antifungal treatment
     Dosage: 1 MILLILITER, QID
     Route: 048
     Dates: start: 20161120, end: 20191123
  39. AMPHO-MORONAL [Concomitant]
     Active Substance: AMPHOTERICIN B
     Dosage: 2 MILLILITER, QID
     Route: 048
     Dates: start: 20191209
  40. ZINC OROTATE [Concomitant]
     Active Substance: ZINC OROTATE
     Indication: Supplementation therapy
     Dosage: 12.50 MILLIGRAM, QD
     Route: 048
     Dates: start: 20190208, end: 20191208
  41. ZINC OROTATE [Concomitant]
     Active Substance: ZINC OROTATE
     Dosage: 12.50 MILLIGRAM, QD
     Route: 048
     Dates: start: 20191209, end: 20200727
  42. ZINC OROTATE [Concomitant]
     Active Substance: ZINC OROTATE
     Dosage: 12.50 MILLIGRAM, QD
     Route: 048
     Dates: start: 20200728
  43. SODIUM CHLORIDE [Concomitant]
     Active Substance: SODIUM CHLORIDE
     Indication: Product used for unknown indication
     Dosage: UNK
     Route: 065
  44. FLUCLOXACILLIN [Concomitant]
     Active Substance: FLUCLOXACILLIN
     Indication: Sepsis
     Dosage: UNK
     Route: 042
     Dates: start: 20200525, end: 20200606
  45. OCTENISAN [ALLANTOIN;OCTENIDINE HYDROCHLORIDE] [Concomitant]
     Indication: Wound treatment
     Dosage: 1 INTERNATIONAL UNIT, QD
     Route: 061
     Dates: start: 20200104, end: 20200520
  46. POLIHEXANIDE [Concomitant]
     Active Substance: POLIHEXANIDE
     Indication: Wound treatment
     Dosage: 1 DOSAGE FORM, QD
     Route: 061
     Dates: start: 20200104, end: 20200520
  47. CREON [Concomitant]
     Active Substance: PANCRELIPASE AMYLASE\PANCRELIPASE LIPASE\PANCRELIPASE PROTEASE
     Indication: Pancreatic failure
     Dosage: 5000 IE, TID
     Route: 048
     Dates: start: 20200728, end: 20201002
  48. CREON [Concomitant]
     Active Substance: PANCRELIPASE AMYLASE\PANCRELIPASE LIPASE\PANCRELIPASE PROTEASE
     Indication: Dyspepsia
     Dosage: 5000 IE, TID
     Route: 048
     Dates: start: 20210919
  49. CREON [Concomitant]
     Active Substance: PANCRELIPASE AMYLASE\PANCRELIPASE LIPASE\PANCRELIPASE PROTEASE
     Dosage: 5000 IE, TID
     Route: 048
     Dates: start: 20201003
  50. CREON [Concomitant]
     Active Substance: PANCRELIPASE AMYLASE\PANCRELIPASE LIPASE\PANCRELIPASE PROTEASE
     Dosage: 5000 IE, TID
     Route: 048
     Dates: start: 20210919
  51. OMNITROPE [Concomitant]
     Active Substance: SOMATROPIN
     Indication: Failure to thrive
     Dosage: 0.45 MILLIGRAM, QD
     Route: 058
     Dates: start: 20200728
  52. PANTOPRAZOLE [Concomitant]
     Active Substance: PANTOPRAZOLE
     Indication: Gastric ulcer
     Dosage: 10 MILLIGRAM
     Route: 065
     Dates: start: 20210919
  53. Kalinor [Concomitant]
     Indication: Hypokalaemia
     Dosage: 1 DOSAGE FORM, QD
     Route: 048
     Dates: start: 20210919
  54. ERYTHROPOIETIN [Concomitant]
     Active Substance: ERYTHROPOIETIN
     Indication: Anaemia
     Dosage: 500 IE, 1/WEEK
     Route: 058
     Dates: start: 20210828
  55. LEVOCARNITIN [Concomitant]
     Indication: Carnitine
     Dosage: 50 MILLIGRAM
     Route: 042
     Dates: start: 20190323, end: 20190801
  56. LEVOCARNITIN [Concomitant]
     Dosage: 50 MILLIGRAM, 1/WEEK
     Route: 042
     Dates: start: 20190802
  57. XYLOMETAZOLINE HYDROCHLORIDE [Concomitant]
     Active Substance: XYLOMETAZOLINE HYDROCHLORIDE
     Indication: Nasal decongestion therapy
     Dosage: 1 DOSAGE FORM
     Route: 055
     Dates: start: 20161120, end: 20190527
  58. LENOGRASTIM [Concomitant]
     Active Substance: LENOGRASTIM
     Indication: Neutropenia
     Dosage: 1 INTERNATIONAL UNIT
     Route: 042
     Dates: start: 20210304
  59. BLEMAREN [Concomitant]
     Indication: Renal failure
     Dosage: 1 DOSAGE FORM, BID
     Route: 048
     Dates: start: 20210304
  60. MEROPENEM [Concomitant]
     Active Substance: MEROPENEM
     Indication: Pyrexia
     Dosage: UNK
     Route: 042
     Dates: start: 20210614, end: 20210616
  61. GENTAMICIN [Concomitant]
     Active Substance: GENTAMICIN
     Indication: Pyrexia
     Dosage: UNK
     Route: 042
     Dates: start: 20210615, end: 20210616
  62. AMPHOTERICIN B [Concomitant]
     Active Substance: AMPHOTERICIN B
     Indication: Pyrexia
     Dosage: UNK
     Route: 042
     Dates: start: 20210615, end: 20210616
  63. FLUCYTOSINE [Concomitant]
     Active Substance: FLUCYTOSINE
     Indication: Candida infection
     Dosage: UNK
     Route: 042
     Dates: start: 20210615, end: 20210617
  64. GRANULOCYTE COLONY-STIMULATING FACTOR NOS [Concomitant]
     Active Substance: GRANULOCYTE COLONY-STIMULATING FACTOR NOS
     Indication: Neutropenia
     Dosage: 5 DOSAGE FORM, QD
     Route: 058
     Dates: start: 20210616
  65. NEFROCARNIT [Concomitant]
     Indication: Carnitine deficiency
     Dosage: 50 MILLIGRAM, 1/WEEK
     Route: 042
     Dates: start: 20210723
  66. COTRIM [Concomitant]
     Active Substance: SULFAMETHOXAZOLE\TRIMETHOPRIM
     Indication: Pneumocystis jirovecii pneumonia
     Dosage: 720 MILLIGRAM, 1/WEEK
     Route: 042
     Dates: start: 20210723
  67. VITAMINS [Concomitant]
     Active Substance: VITAMINS
     Indication: Hypovitaminosis
     Dosage: 6 MILLILITER, QD
     Route: 042
     Dates: start: 20211215
  68. ERGOCALCIFEROL\PHYTONADIONE\RETINOL\TOCOPHEROL [Concomitant]
     Active Substance: ERGOCALCIFEROL\PHYTONADIONE\RETINOL\TOCOPHEROL
     Indication: Hypovitaminosis
     Dosage: 6 MILLILITER, QD
     Route: 042
     Dates: start: 20211215
  69. ENOXAPARIN SODIUM [Concomitant]
     Active Substance: ENOXAPARIN SODIUM
     Indication: Anticoagulant therapy
     Dosage: 80 MILLIGRAM, QD
     Route: 042
     Dates: start: 20211215

REACTIONS (2)
  - Systemic infection [Recovered/Resolved]
  - Neutropenia [Recovered/Resolved]

NARRATIVE: CASE EVENT DATE: 20190701
